FAERS Safety Report 5306056-6 (Version None)
Quarter: 2007Q2

REPORT INFORMATION
  Report Type: 
  Country: None (occurrence: None)
  Receive Date: 20070424
  Receipt Date: 20060420
  Transmission Date: 20071010
  Serious: Yes (Other)
  Sender: FDA-Public Use
  Company Number: US-BRISTOL-MYERS SQUIBB COMPANY-13352810

PATIENT
  Age: 64 Year
  Sex: Male
  Weight: 91 kg

DRUGS (3)
  1. HYDROXYCARBAMIDE [Suspect]
     Dates: start: 20050808
  2. ARANESP [Suspect]
     Indication: MYELODYSPLASTIC SYNDROME
     Route: 058
     Dates: start: 20050808, end: 20050922
  3. ALLOPURINOL [Concomitant]
     Dates: start: 20050808

REACTIONS (1)
  - BONE MARROW FAILURE [None]
